FAERS Safety Report 12698379 (Version 1)
Quarter: 2016Q3

REPORT INFORMATION
  Report Type: Spontaneous
  Country: US (occurrence: US)
  Receive Date: 20160830
  Receipt Date: 20160830
  Transmission Date: 20161109
  Serious: No
  Sender: FDA-Public Use
  Company Number: US-JNJFOC-20160624853

PATIENT
  Age: 17 Year
  Sex: Female
  Weight: 58.97 kg

DRUGS (3)
  1. RISPERDAL [Suspect]
     Active Substance: RISPERIDONE
     Indication: ANXIETY
     Dosage: ONCE DAILY IN MORNING; NOT STARTED YET.
     Route: 048
  2. PROZAC [Concomitant]
     Active Substance: FLUOXETINE HYDROCHLORIDE
     Indication: ANXIETY
     Route: 048
  3. RISPERDAL [Suspect]
     Active Substance: RISPERIDONE
     Indication: ANXIETY
     Route: 048
     Dates: start: 201604

REACTIONS (4)
  - Product use issue [Unknown]
  - Drug ineffective for unapproved indication [Unknown]
  - Product label issue [Unknown]
  - Off label use [Unknown]

NARRATIVE: CASE EVENT DATE: 201604
